FAERS Safety Report 22041275 (Version 2)
Quarter: 2023Q1

REPORT INFORMATION
  Report Type: Spontaneous
  Country: TR (occurrence: None)
  Receive Date: 20230227
  Receipt Date: 20230322
  Transmission Date: 20230418
  Serious: Yes (Other)
  Sender: FDA-Public Use
  Company Number: TR-ROCHE-3292883

PATIENT

DRUGS (1)
  1. ALECENSA [Suspect]
     Active Substance: ALECTINIB HYDROCHLORIDE
     Indication: Lung adenocarcinoma
     Dosage: PATIENT TAKING ALECENSA^ ON 06/MAR/2023, 13/MAR/2023 AND 16/MAR/2023
     Route: 065

REACTIONS (6)
  - Hypersensitivity [Unknown]
  - Rash vesicular [Unknown]
  - Pyrexia [Unknown]
  - Oedema [Unknown]
  - Constipation [Unknown]
  - Rash erythematous [Unknown]
